FAERS Safety Report 24358735 (Version 1)
Quarter: 2024Q3

REPORT INFORMATION
  Report Type: Spontaneous
  Country: JP (occurrence: JP)
  Receive Date: 20240924
  Receipt Date: 20240924
  Transmission Date: 20241017
  Serious: Yes (Other)
  Sender: BAYER
  Company Number: JP-BAYER-2024A134561

PATIENT
  Age: 77 Year
  Sex: Male

DRUGS (2)
  1. NUBEQA [Suspect]
     Active Substance: DAROLUTAMIDE
     Indication: Prostate cancer metastatic
  2. DOCETAXEL [Concomitant]
     Active Substance: DOCETAXEL\DOCETAXEL ANHYDROUS
     Dosage: 3

REACTIONS (6)
  - Febrile neutropenia [None]
  - Enterocolitis [None]
  - Diarrhoea [None]
  - Hepatic enzyme increased [None]
  - Rash [None]
  - Hypocalcaemia [None]
